FAERS Safety Report 10947148 (Version 2)
Quarter: 2015Q2

REPORT INFORMATION
  Report Type: Spontaneous
  Country: US (occurrence: US)
  Receive Date: 20150321
  Receipt Date: 20150525
  Transmission Date: 20150821
  Serious: No
  Sender: FDA-Public Use
  Company Number: US-JNJFOC-20141204531

PATIENT
  Sex: Male

DRUGS (4)
  1. CITRIC ACID W/SODIUM CITRATE [Concomitant]
     Indication: RENAL LITHIASIS PROPHYLAXIS
     Route: 065
  2. LYRICA [Concomitant]
     Active Substance: PREGABALIN
     Indication: NEURALGIA
     Route: 065
  3. TOPAMAX [Suspect]
     Active Substance: TOPIRAMATE
     Indication: NEURALGIA
     Route: 048
  4. TOPAMAX [Suspect]
     Active Substance: TOPIRAMATE
     Indication: NEURALGIA
     Route: 048

REACTIONS (2)
  - Product use issue [Unknown]
  - Drug ineffective for unapproved indication [Recovered/Resolved]
